FAERS Safety Report 6908157-5 (Version None)
Quarter: 2010Q3

REPORT INFORMATION
  Report Type: 
  Country: None (occurrence: None)
  Receive Date: 20100716
  Receipt Date: 20090701
  Transmission Date: 20110219
  Serious: Yes (Life-Threatening)
  Sender: FDA-Public Use
  Company Number: 2009235255

PATIENT
  Age: 54 Year
  Sex: Male

DRUGS (7)
  1. CELEBREX [Suspect]
     Indication: GLIOBLASTOMA MULTIFORME
     Dosage: 200 MG, 1X/DAY, ORAL : 400 MG, 1X/DAY, ORAL
     Route: 048
     Dates: start: 20090228, end: 20090310
  2. CELEBREX [Suspect]
     Indication: GLIOBLASTOMA MULTIFORME
     Dosage: 200 MG, 1X/DAY, ORAL : 400 MG, 1X/DAY, ORAL
     Route: 048
     Dates: start: 20090402
  3. THALOMID [Suspect]
     Indication: GLIOBLASTOMA MULTIFORME
     Dosage: 100 MG, 1X/DAY, ORAL
     Route: 048
     Dates: start: 20090228, end: 20090310
  4. TEMODAR [Concomitant]
  5. PHENOBARBITAL TAB [Concomitant]
  6. FOLIC ACID [Concomitant]
  7. TOPAMAX [Concomitant]

REACTIONS (1)
  - RASH [None]
